FAERS Safety Report 7501775-5 (Version None)
Quarter: 2011Q2

REPORT INFORMATION
  Report Type: 
  Country: None (occurrence: None)
  Receive Date: 20110523
  Receipt Date: 20110523
  Transmission Date: 20111010
  Serious: Yes (Hospitalization, Other)
  Sender: FDA-Public Use
  Company Number: None

PATIENT
  Age: 39 Year
  Sex: Female
  Weight: 53 kg

DRUGS (2)
  1. DIFLUCAN [Suspect]
     Indication: CELLULITIS
     Dosage: 100MG DAILY PO RECENT
     Route: 048
  2. COUMADIN [Suspect]
     Indication: VASCULAR COMPRESSION
     Dosage: 5MG QPM PO
     Route: 048

REACTIONS (3)
  - FALL [None]
  - INTERNATIONAL NORMALISED RATIO INCREASED [None]
  - HAEMORRHAGE INTRACRANIAL [None]
